FAERS Safety Report 9096502 (Version 1)
Quarter: 2013Q1

REPORT INFORMATION
  Report Type: Report from Study
  Country: JP (occurrence: JP)
  Receive Date: 20130211
  Receipt Date: 20130211
  Transmission Date: 20140127
  Serious: Yes (Other)
  Sender: FDA-Public Use
  Company Number: JP-VERTEX PHARMACEUTICALS INC.-AE-2012-008219

PATIENT
  Age: 35 Year
  Sex: Male

DRUGS (14)
  1. VX-950 (TELAPREVIR) [Suspect]
     Indication: CHRONIC HEPATITIS C
     Dosage: 2250 MG, QD
     Route: 048
     Dates: start: 20120406, end: 20120417
  2. VX-950 (TELAPREVIR) [Suspect]
     Dosage: 2250 UNK, UNK
     Route: 048
     Dates: start: 20120620, end: 20120909
  3. RIBAVIRIN [Suspect]
     Indication: CHRONIC HEPATITIS C
     Dosage: 1000 MG, QD
     Route: 048
     Dates: start: 20120406, end: 20120417
  4. RIBAVIRIN [Suspect]
     Dosage: 1000 MG, QD
     Route: 048
     Dates: start: 20120620
  5. PEGINTRON [Suspect]
     Indication: CHRONIC HEPATITIS C
     Dosage: 1.5 ?G/KG, WEEKLY
     Route: 058
     Dates: start: 20120406, end: 20120425
  6. PEGINTRON [Suspect]
     Dosage: 1.5 ?G/KG, WEEKLY
     Route: 058
     Dates: start: 20120620
  7. AMARYL [Concomitant]
     Dosage: 1 MG, QD
     Route: 048
     Dates: end: 20120501
  8. AMARYL [Concomitant]
     Dosage: 1 MG, QD
     Route: 048
     Dates: start: 20120530
  9. ACTOS [Concomitant]
     Dosage: 15 MG, QD
     Route: 048
     Dates: end: 20120501
  10. ACTOS [Concomitant]
     Dosage: 15 MG, QD
     Route: 048
     Dates: start: 20120530
  11. LOCHOL [Concomitant]
     Dosage: 30 MG, QD
     Route: 048
     Dates: end: 20120501
  12. LOCHOL [Concomitant]
     Dosage: 30 MG, QD
     Route: 048
     Dates: start: 20120530
  13. DIOVAN [Concomitant]
     Dosage: 160 MG, QD
     Route: 048
     Dates: end: 20120501
  14. DIOVAN [Concomitant]
     Dosage: 160 MG, QD
     Route: 048
     Dates: start: 20120530

REACTIONS (1)
  - Neutrophil count decreased [Recovered/Resolved]
